FAERS Safety Report 9640292 (Version 1)
Quarter: 2013Q4

REPORT INFORMATION
  Report Type: Spontaneous
  Country: NL (occurrence: NL)
  Receive Date: 20131023
  Receipt Date: 20131023
  Transmission Date: 20140711
  Serious: Yes (Other)
  Sender: FDA-Public Use
  Company Number: NL-UCBSA-092984

PATIENT
  Age: 21 Year
  Sex: Male

DRUGS (2)
  1. LEVOCETIRIZINE [Suspect]
     Indication: SEASONAL ALLERGY
     Route: 048
     Dates: start: 20130423, end: 201306
  2. NASONEX [Concomitant]
     Dosage: 50 MCG/DOSE

REACTIONS (2)
  - Road traffic accident [Recovered/Resolved]
  - Somnolence [Recovered/Resolved]
